FAERS Safety Report 9068458 (Version 1)
Quarter: 2013Q1

REPORT INFORMATION
  Report Type: Spontaneous
  Country: US (occurrence: None)
  Receive Date: 20130212
  Receipt Date: 20130212
  Transmission Date: 20140127
  Serious: Yes (Other)
  Sender: FDA-Public Use
  Company Number: None

PATIENT
  Age: 60 Year
  Sex: Female
  Weight: 86.18 kg

DRUGS (4)
  1. ABILIFY [Suspect]
     Indication: DEPRESSION
     Dosage: 10 MG DAILY PO
     Route: 048
     Dates: start: 20120115, end: 20130115
  2. METHOCARBAMOL [Concomitant]
  3. TRAMADOL [Concomitant]
  4. DULOXETINE [Concomitant]

REACTIONS (2)
  - Dyskinesia [None]
  - Tardive dyskinesia [None]
